FAERS Safety Report 9803982 (Version 3)
Quarter: 2014Q1

REPORT INFORMATION
  Report Type: Spontaneous
  Country: US (occurrence: US)
  Receive Date: 20140108
  Receipt Date: 20140117
  Transmission Date: 20141002
  Serious: No
  Sender: FDA-Public Use
  Company Number: US-B.I. PHARMACEUTICALS,INC./RIDGEFIELD-2013-BI-21138BP

PATIENT
  Sex: Male
  Weight: 79.38 kg

DRUGS (7)
  1. PRADAXA [Suspect]
     Indication: ATRIAL FIBRILLATION
     Dosage: 150 MG
     Dates: start: 20110719, end: 20110923
  2. PRADAXA [Suspect]
     Indication: ANTICOAGULANT THERAPY
  3. AMIODARONE [Concomitant]
  4. PANTOPRAZOLE [Concomitant]
  5. LANOXIN [Concomitant]
  6. ALPRAZOLAM [Concomitant]
  7. NITROFURANTOIN [Concomitant]

REACTIONS (3)
  - Haematuria [Unknown]
  - Contusion [Unknown]
  - Skin disorder [Unknown]
